FAERS Safety Report 13154009 (Version 6)
Quarter: 2017Q2

REPORT INFORMATION
  Report Type: Report from Study
  Country: US (occurrence: US)
  Receive Date: 20170126
  Receipt Date: 20170417
  Transmission Date: 20170830
  Serious: Yes (Other)
  Sender: FDA-Public Use
  Company Number: US-MALLINCKRODT-T201700151

PATIENT
  Sex: Male

DRUGS (2)
  1. REPOSITORY CORTICOTROPIN INJECTION [Suspect]
     Active Substance: CORTICOTROPIN
     Indication: GLOMERULONEPHRITIS MEMBRANOUS
     Dosage: 40 UNITS / 0.5 ML, 2 TIMES PER WEEK, MONDAY AND THURSDAY
     Route: 058
     Dates: start: 20161110, end: 201701
  2. REPOSITORY CORTICOTROPIN INJECTION [Suspect]
     Active Substance: CORTICOTROPIN
     Dosage: 80 UNITS / ML, 2 TIMES PER WEEK (MONDAY AND THURSDAY
     Route: 058
     Dates: start: 201701

REACTIONS (10)
  - Glycosylated haemoglobin increased [Unknown]
  - Oedema peripheral [Not Recovered/Not Resolved]
  - Pyrexia [Unknown]
  - Protein total increased [Unknown]
  - Cough [Unknown]
  - Acne [Unknown]
  - Weight increased [Not Recovered/Not Resolved]
  - Breath sounds [Unknown]
  - Viral upper respiratory tract infection [Recovered/Resolved]
  - Blood glucose increased [Unknown]

NARRATIVE: CASE EVENT DATE: 2016
